FAERS Safety Report 18690928 (Version 1)
Quarter: 2021Q1

REPORT INFORMATION
  Report Type: Spontaneous
  Country: NO (occurrence: NO)
  Receive Date: 20210101
  Receipt Date: 20210101
  Transmission Date: 20210419
  Serious: Yes (Hospitalization)
  Sender: FDA-Public Use
  Company Number: NO-ACCORD-201132

PATIENT
  Age: 32 Year
  Sex: Male

DRUGS (6)
  1. ETOPOSIDE. [Concomitant]
     Active Substance: ETOPOSIDE
     Indication: TESTIS CANCER
     Dosage: FIRST BEP TREATMENT CYCLE, NOT WITHDRAWN.
     Route: 041
     Dates: start: 20200810, end: 20200814
  2. AKYNZEO [Concomitant]
     Active Substance: NETUPITANT\PALONOSETRON HYDROCHLORIDE
     Indication: NAUSEA
     Dosage: NOT WITHDRAWN. STRENGTH: NETUPITANT: 300 MG, PALONOSETRON: 0.5 MG
     Route: 048
     Dates: start: 20200810, end: 20200814
  3. BLEOMYCIN [Concomitant]
     Active Substance: BLEOMYCIN SULFATE
     Indication: TESTIS CANCER
     Dosage: STRENGTH: 15000 IU INTERNATIONAL UNIT(S), FIRST BEP TREATMENT CYCLE, NOT WITHDRAWN.
     Route: 041
     Dates: start: 20200810, end: 20200814
  4. DEXAMETHASONE. [Concomitant]
     Active Substance: DEXAMETHASONE
     Indication: NAUSEA
     Dosage: NOT WITHDRAWN.
     Route: 048
     Dates: start: 20200810, end: 20200814
  5. PELGRAZ [Concomitant]
     Active Substance: PEGFILGRASTIM
     Indication: COLONY STIMULATING FACTOR THERAPY
     Dosage: STRENGTH: 6 MG
     Route: 058
     Dates: start: 20200815, end: 20200815
  6. CISPLATIN ACCORD [Suspect]
     Active Substance: CISPLATIN
     Indication: TESTIS CANCER
     Dosage: 37.2 MG IV DAILY FOR 5 DAYS PER CURE
     Route: 042
     Dates: start: 20200810, end: 20201007

REACTIONS (7)
  - Hypoaesthesia [Recovering/Resolving]
  - Taste disorder [Recovering/Resolving]
  - Dysphonia [Recovering/Resolving]
  - Cognitive disorder [Recovering/Resolving]
  - Feeling abnormal [Recovering/Resolving]
  - Dyspnoea [Recovering/Resolving]
  - Hypoacusis [Recovering/Resolving]

NARRATIVE: CASE EVENT DATE: 20200816
